FAERS Safety Report 6947600-2 (Version None)
Quarter: 2010Q3

REPORT INFORMATION
  Report Type: 
  Country: None (occurrence: None)
  Receive Date: 20100828
  Receipt Date: 20090925
  Transmission Date: 20110219
  Serious: No
  Sender: FDA-Public Use
  Company Number: US-ABBOTT-09P-163-0599363-00

PATIENT
  Sex: Male
  Weight: 72.186 kg

DRUGS (4)
  1. NIASPAN [Suspect]
     Indication: PRODUCT USED FOR UNKNOWN INDICATION
  2. AMARYL [Concomitant]
     Indication: PRODUCT USED FOR UNKNOWN INDICATION
  3. UNKNOWN NAME [Concomitant]
     Indication: PROSTATIC DISORDER
  4. UNKNOWN NAME [Concomitant]
     Indication: HYPERTENSION

REACTIONS (2)
  - ERYTHEMA [None]
  - PRURITUS [None]
